FAERS Safety Report 25156008 (Version 1)
Quarter: 2025Q2

REPORT INFORMATION
  Report Type: Spontaneous
  Country: LT (occurrence: LT)
  Receive Date: 20250403
  Receipt Date: 20250403
  Transmission Date: 20250717
  Serious: Yes (Other)
  Sender: BAYER
  Company Number: LT-BAYER-2025A041031

PATIENT
  Age: 32 Year
  Sex: Female

DRUGS (3)
  1. MIRENA [Suspect]
     Active Substance: LEVONORGESTREL
     Indication: Polycystic ovarian syndrome
     Dosage: 20?G/DAY
     Route: 015
     Dates: start: 20250104
  2. Betablock [Concomitant]
     Indication: Palpitations
     Dates: start: 20250130
  3. METFORMIN [Concomitant]
     Active Substance: METFORMIN HYDROCHLORIDE
     Indication: Insulin resistance
     Dates: start: 20250301

REACTIONS (3)
  - Cardiac disorder [Not Recovered/Not Resolved]
  - Heart rate [Recovered/Resolved]
  - Device use issue [None]

NARRATIVE: CASE EVENT DATE: 20250130
